FAERS Safety Report 8231201-2 (Version None)
Quarter: 2012Q1

REPORT INFORMATION
  Report Type: 
  Country: None (occurrence: None)
  Receive Date: 20120323
  Receipt Date: 20120323
  Transmission Date: 20120608
  Serious: No
  Sender: FDA-Public Use
  Company Number: None

PATIENT
  Age: 75 Year
  Sex: Female
  Weight: 100.8 kg

DRUGS (1)
  1. PRADAXA [Suspect]
     Indication: ATRIAL FIBRILLATION
     Dosage: 75 MG
     Route: 048
     Dates: start: 20120124, end: 20120321

REACTIONS (5)
  - DYSARTHRIA [None]
  - BLOOD CREATININE INCREASED [None]
  - CEREBRAL INFARCTION [None]
  - VIITH NERVE PARALYSIS [None]
  - CEREBRAL ARTERY EMBOLISM [None]
